FAERS Safety Report 9834930 (Version 1)
Quarter: 2014Q1

REPORT INFORMATION
  Report Type: Spontaneous
  Country: FI (occurrence: FI)
  Receive Date: 20140122
  Receipt Date: 20140122
  Transmission Date: 20141002
  Serious: Yes (Life-Threatening)
  Sender: FDA-Public Use
  Company Number: FI-GLAXOSMITHKLINE-B0961392A

PATIENT
  Age: 67 Year
  Sex: Female

DRUGS (10)
  1. DUACT [Suspect]
     Indication: RHINITIS ALLERGIC
     Route: 048
     Dates: start: 20131227, end: 20140102
  2. AZELASTINE HYDROCHLORIDE [Suspect]
     Indication: RHINITIS ALLERGIC
     Dosage: 1SPR TWICE PER DAY
     Route: 045
     Dates: start: 20131227, end: 20131231
  3. FLIXOTIDE DISKUS [Suspect]
     Indication: ASTHMA
     Dosage: 250UG TWICE PER DAY
     Route: 055
     Dates: start: 2008, end: 20140101
  4. CALCICHEW D3 FORTE [Concomitant]
     Indication: OSTEOPOROSIS
     Dosage: 1TAB TWICE PER DAY
     Route: 048
     Dates: start: 2002
  5. VITAMIN D [Concomitant]
     Indication: OSTEOPOROSIS
     Route: 048
     Dates: start: 2010
  6. LACTOBACILLUS [Concomitant]
     Indication: GASTRIC DISORDER
     Route: 048
  7. VENTOLIN DISKUS [Concomitant]
     Indication: ASTHMA
     Dosage: 200UG AS REQUIRED
     Route: 055
     Dates: start: 2000
  8. XYLOMETAZOLINE HYDROCHLORIDE [Concomitant]
     Indication: NASAL CONGESTION
     Dosage: 1SPR AS REQUIRED
     Route: 045
     Dates: start: 20131223, end: 20131226
  9. SERETIDE DISKUS [Concomitant]
     Indication: ASTHMA
     Route: 055
  10. DESLORATADINE [Concomitant]
     Indication: ASTHMA
     Dosage: 1TAB PER DAY
     Route: 048
     Dates: start: 20121211, end: 20131226

REACTIONS (12)
  - Headache [Not Recovered/Not Resolved]
  - Dizziness [Not Recovered/Not Resolved]
  - Glossodynia [Not Recovered/Not Resolved]
  - Paraesthesia oral [Not Recovered/Not Resolved]
  - Throat irritation [Not Recovered/Not Resolved]
  - Oropharyngeal pain [Not Recovered/Not Resolved]
  - Swollen tongue [Not Recovered/Not Resolved]
  - Nasal congestion [Not Recovered/Not Resolved]
  - Dysphagia [Not Recovered/Not Resolved]
  - Chest discomfort [Not Recovered/Not Resolved]
  - Emotional distress [Not Recovered/Not Resolved]
  - Anxiety [Not Recovered/Not Resolved]
